FAERS Safety Report 17081404 (Version 1)
Quarter: 2019Q4

REPORT INFORMATION
  Report Type: Spontaneous
  Country: US (occurrence: US)
  Receive Date: 20191126
  Receipt Date: 20191126
  Transmission Date: 20200122
  Serious: Yes (Other)
  Sender: FDA-Public Use
  Company Number: None

PATIENT
  Age: 27 Year
  Sex: Female
  Weight: 45 kg

DRUGS (1)
  1. BUPROPRION XR [Suspect]
     Active Substance: BUPROPION
     Indication: BIPOLAR DISORDER
     Dosage: ?          QUANTITY:30 TABLET(S);?
     Route: 048

REACTIONS (4)
  - Oedema peripheral [None]
  - Arthralgia [None]
  - Gait inability [None]
  - Pain [None]
